FAERS Safety Report 8844256 (Version 2)
Quarter: 2013Q2

REPORT INFORMATION
  Report Type: Spontaneous
  Country: US (occurrence: US)
  Receive Date: 20121017
  Receipt Date: 20130603
  Transmission Date: 20140414
  Serious: Yes (Other)
  Sender: FDA-Public Use
  Company Number: US-BAYER-2012-106304

PATIENT
  Age: 42 Year
  Sex: Female

DRUGS (5)
  1. CIPRO [Suspect]
  2. ARMOUR THYROID [Concomitant]
  3. BENICAR [Concomitant]
  4. IBUPROFEN [Concomitant]
  5. MEDROL [METHYLPREDNISOLONE] [Concomitant]

REACTIONS (3)
  - Tendon disorder [None]
  - Lipoma [None]
  - Tenosynovitis [None]
